FAERS Safety Report 25627664 (Version 3)
Quarter: 2025Q3

REPORT INFORMATION
  Report Type: Spontaneous
  Country: US (occurrence: US)
  Receive Date: 20250731
  Receipt Date: 20250812
  Transmission Date: 20251021
  Serious: No
  Sender: Kenvue
  Company Number: US-KENVUE-20250703000

PATIENT
  Sex: Female

DRUGS (6)
  1. IBUPROFEN [Suspect]
     Active Substance: IBUPROFEN
     Indication: Headache
     Route: 065
     Dates: start: 2025
  2. IBUPROFEN [Suspect]
     Active Substance: IBUPROFEN
     Indication: Myalgia
  3. UPTRAVI (MNTH 2 TITR) 200/800MC [Concomitant]
     Indication: Pulmonary arterial hypertension
     Dosage: 800MCG BID (USING 4-200MCG TABS)
     Route: 048
     Dates: start: 202505
  4. UPTRAVI (MNTH 2 TITR) 200/800MC [Concomitant]
     Dosage: 600 MICROGRAM, TWICE A DAY
     Route: 048
     Dates: start: 2025
  5. SILDENAFIL CITRATE [Concomitant]
     Active Substance: SILDENAFIL CITRATE
     Indication: Product used for unknown indication
     Route: 065
  6. OPSUMIT [Concomitant]
     Active Substance: MACITENTAN
     Indication: Product used for unknown indication
     Route: 065

REACTIONS (1)
  - Drug ineffective [Unknown]

NARRATIVE: CASE EVENT DATE: 20250101
